FAERS Safety Report 14962116 (Version 1)
Quarter: 2018Q2

REPORT INFORMATION
  Report Type: Spontaneous
  Country: US (occurrence: US)
  Receive Date: 20180601
  Receipt Date: 20180601
  Transmission Date: 20180711
  Serious: No
  Sender: FDA-Public Use
  Company Number: US-009507513-1805USA012759

PATIENT
  Sex: Female

DRUGS (1)
  1. FOLLISTIM AQ [Suspect]
     Active Substance: FOLLITROPIN
     Indication: INFERTILITY FEMALE
     Dosage: 750 DF (900 IU/1.08 ML), QD
     Route: 058
     Dates: start: 201710

REACTIONS (2)
  - Circumstance or information capable of leading to medication error [Unknown]
  - Product packaging issue [Unknown]
